FAERS Safety Report 9118756 (Version 4)
Quarter: 2013Q3

REPORT INFORMATION
  Report Type: Report from Study
  Country: US (occurrence: US)
  Receive Date: 20130226
  Receipt Date: 20130930
  Transmission Date: 20140515
  Serious: Yes (Death)
  Sender: FDA-Public Use
  Company Number: US-BIOGENIDEC-2013BI017122

PATIENT
  Age: 39 Year
  Sex: Female
  Weight: 79 kg

DRUGS (22)
  1. TYSABRI [Suspect]
     Indication: MULTIPLE SCLEROSIS
     Route: 042
     Dates: start: 20090518, end: 20101004
  2. BACLOFEN [Concomitant]
     Indication: MUSCLE SPASTICITY
     Dates: start: 20111003
  3. VITAMIN B-12 [Concomitant]
     Route: 030
     Dates: start: 20120809
  4. DILANTIN [Concomitant]
     Indication: NEURALGIA
     Route: 048
     Dates: start: 20111003
  5. LORAZEPAM [Concomitant]
     Indication: DEPRESSION
     Route: 048
     Dates: start: 20120809
  6. LYRICA [Concomitant]
     Indication: NEURALGIA
     Route: 048
     Dates: start: 20120403
  7. MELOXICAM [Concomitant]
     Indication: NEURALGIA
     Route: 048
     Dates: start: 20111003
  8. NUEDEXTA [Concomitant]
     Indication: MOOD DISORDER DUE TO A GENERAL MEDICAL CONDITION
     Route: 048
     Dates: start: 20120420
  9. ROPINIROLE [Concomitant]
     Indication: PARAESTHESIA
     Route: 048
     Dates: start: 20111003
  10. TRAMADOL [Concomitant]
     Indication: NEURALGIA
     Route: 048
     Dates: start: 20111003
  11. ZOLPIDEM [Concomitant]
     Indication: INSOMNIA
     Route: 048
     Dates: start: 20111003
  12. ABILIFY [Concomitant]
     Route: 048
     Dates: start: 20090406
  13. ADDERALL [Concomitant]
     Route: 048
     Dates: start: 20091221
  14. AMPYRA [Concomitant]
     Route: 048
     Dates: start: 20110324
  15. BIOTIN [Concomitant]
     Route: 048
     Dates: start: 20071030
  16. CITRAL CALCIUM [Concomitant]
     Route: 048
     Dates: start: 20071030
  17. CYMBALTA [Concomitant]
     Route: 048
     Dates: start: 20071030
  18. FLAXSEED OIL [Concomitant]
     Route: 048
     Dates: start: 20071030
  19. GILENYA [Concomitant]
     Route: 048
     Dates: start: 20110701
  20. MULTIVITAMIN [Concomitant]
     Route: 048
     Dates: start: 20071030
  21. VESICARE [Concomitant]
     Dates: start: 20110701
  22. ZINC [Concomitant]
     Route: 048
     Dates: start: 20071030

REACTIONS (1)
  - Myocardial infarction [Fatal]
